FAERS Safety Report 4626459-2 (Version None)
Quarter: 2005Q1

REPORT INFORMATION
  Report Type: 
  Country: None (occurrence: None)
  Receive Date: 20050330
  Receipt Date: 20050316
  Transmission Date: 20050727
  Serious: Yes (Hospitalization)
  Sender: FDA-Public Use
  Company Number: USA050189015

PATIENT
  Age: 65 Year
  Sex: Female
  Weight: 46 kg

DRUGS (7)
  1. FORTEO [Suspect]
     Indication: OSTEOPOROSIS
     Dosage: 20 UG
     Dates: start: 20041001
  2. CALCIUM GLUCONATE [Concomitant]
  3. WELCHOL [Concomitant]
  4. ZETIA [Concomitant]
  5. CALTRATE + D [Concomitant]
  6. CITRACAL (CALCIUM CITRATE) [Concomitant]
  7. IRON [Concomitant]

REACTIONS (5)
  - ABDOMINAL PAIN LOWER [None]
  - CONSTIPATION [None]
  - FEMORAL HERNIA [None]
  - NAUSEA [None]
  - PHARMACEUTICAL PRODUCT COMPLAINT [None]
